FAERS Safety Report 5587960-0 (Version None)
Quarter: 2008Q1

REPORT INFORMATION
  Report Type: 
  Country: None (occurrence: None)
  Receive Date: 20080111
  Receipt Date: 20080108
  Transmission Date: 20080703
  Serious: Yes (Death)
  Sender: FDA-Public Use
  Company Number: JP-JNJFOC-20080101914

PATIENT
  Sex: Male

DRUGS (6)
  1. ITRIZOLE [Suspect]
     Indication: ORAL CANDIDIASIS
     Route: 048
  2. INTRAFAT [Concomitant]
     Indication: DEHYDRATION
     Route: 042
  3. SODIUM CHLORIDE INJ [Concomitant]
     Indication: DEHYDRATION
     Route: 042
  4. FULCALIQ 1 [Concomitant]
     Indication: HYPOPROTEINAEMIA
     Route: 042
  5. HUMULIN 70/30 [Concomitant]
     Indication: DIABETES MELLITUS
     Route: 042
  6. BISOLVON [Concomitant]
     Indication: BRONCHITIS CHRONIC
     Route: 042

REACTIONS (1)
  - SHOCK [None]
